FAERS Safety Report 12676886 (Version 2)
Quarter: 2016Q3

REPORT INFORMATION
  Report Type: Spontaneous
  Country: GB (occurrence: GB)
  Receive Date: 20160823
  Receipt Date: 20160831
  Transmission Date: 20161109
  Serious: Yes (Hospitalization, Other)
  Sender: FDA-Public Use
  Company Number: GB-DRREDDYS-USA/UKI/16/0082576

PATIENT
  Age: 19 Year
  Sex: Female

DRUGS (6)
  1. FLUOXETINE [Suspect]
     Active Substance: FLUOXETINE HYDROCHLORIDE
     Indication: DEPRESSION
     Route: 065
  2. CITALOPRAM [Suspect]
     Active Substance: CITALOPRAM HYDROBROMIDE
     Indication: DEPRESSION
     Route: 065
  3. 3,4-METHYLENEDIOXYMETHAMPHETAMINE [Concomitant]
     Indication: PRODUCT USED FOR UNKNOWN INDICATION
     Route: 065
  4. CANNABIS [Suspect]
     Active Substance: CANNABIS SATIVA SUBSP. INDICA TOP
     Indication: PRODUCT USED FOR UNKNOWN INDICATION
     Route: 065
  5. METHYLPHENIDATE. [Concomitant]
     Active Substance: METHYLPHENIDATE
     Indication: PRODUCT USED FOR UNKNOWN INDICATION
     Route: 065
  6. COCAINE [Concomitant]
     Active Substance: COCAINE
     Indication: PRODUCT USED FOR UNKNOWN INDICATION
     Route: 065

REACTIONS (10)
  - Respiratory acidosis [Recovered/Resolved]
  - Coma scale abnormal [Recovered/Resolved]
  - Toxicity to various agents [Recovered/Resolved]
  - Blood pressure increased [Recovered/Resolved]
  - Hypertonia [Recovered/Resolved]
  - Agitation [Recovered/Resolved]
  - Hallucination, visual [Recovered/Resolved]
  - Sinus tachycardia [Recovered/Resolved]
  - Tonic convulsion [Recovered/Resolved]
  - Clonus [Recovered/Resolved]
